FAERS Safety Report 8555196-7 (Version None)
Quarter: 2012Q3

REPORT INFORMATION
  Report Type: 
  Country: None (occurrence: None)
  Receive Date: 20120731
  Receipt Date: 20120723
  Transmission Date: 20120928
  Serious: Yes (Disabling, Other)
  Sender: FDA-Public Use
  Company Number: US-009507513-1207USA010521

PATIENT

DRUGS (2)
  1. ZOCOR [Suspect]
     Dosage: 20 MG, QD
     Route: 048
  2. THYROID TAB [Concomitant]

REACTIONS (6)
  - OEDEMA PERIPHERAL [None]
  - GAIT DISTURBANCE [None]
  - MUSCULOSKELETAL PAIN [None]
  - PAIN [None]
  - BLOOD URINE PRESENT [None]
  - JOINT SWELLING [None]
